FAERS Safety Report 11176041 (Version 1)
Quarter: 2015Q2

REPORT INFORMATION
  Report Type: Spontaneous
  Country: US (occurrence: None)
  Receive Date: 20150608
  Receipt Date: 20150608
  Transmission Date: 20150821
  Serious: No
  Sender: FDA-Public Use
  Company Number: None

PATIENT
  Age: 24 Year
  Sex: Female
  Weight: 52.16 kg

DRUGS (8)
  1. ACZONE [Suspect]
     Active Substance: DAPSONE
     Indication: ACNE
     Dosage: 1 PEA SIZED DROP TO FACE
     Route: 061
     Dates: start: 20150424, end: 20150606
  2. METFORMIN [Concomitant]
     Active Substance: METFORMIN HYDROCHLORIDE
  3. LEVEMIR [Concomitant]
     Active Substance: INSULIN DETEMIR
  4. ACZONE [Concomitant]
     Active Substance: DAPSONE
  5. CINNAMON. [Concomitant]
     Active Substance: CINNAMON
  6. VITAMIN B12 [Concomitant]
     Active Substance: CYANOCOBALAMIN
  7. EPIDUO [Concomitant]
     Active Substance: ADAPALENE\BENZOYL PEROXIDE
  8. EPIDUO [Suspect]
     Active Substance: ADAPALENE\BENZOYL PEROXIDE
     Indication: ACNE
     Route: 061
     Dates: start: 20150424, end: 20150606

REACTIONS (4)
  - Skin exfoliation [None]
  - Eyelid oedema [None]
  - Skin burning sensation [None]
  - Erythema of eyelid [None]

NARRATIVE: CASE EVENT DATE: 20150606
